FAERS Safety Report 9535786 (Version 4)
Quarter: 2013Q4

REPORT INFORMATION
  Report Type: Spontaneous
  Country: JP (occurrence: JP)
  Receive Date: 20130919
  Receipt Date: 20131029
  Transmission Date: 20140711
  Serious: Yes (Hospitalization, Other)
  Sender: FDA-Public Use
  Company Number: JP-009507513-1308JPN004091

PATIENT
  Age: 67 Year
  Sex: Male
  Weight: 62 kg

DRUGS (12)
  1. REBETOL [Suspect]
     Indication: CHRONIC HEPATITIS C
     Dosage: DAILY DOSAGE UNKNOWN
     Route: 048
     Dates: start: 20130510, end: 201307
  2. REBETOL [Suspect]
     Dosage: UNK
     Route: 048
     Dates: start: 201306, end: 201308
  3. AMARYL [Suspect]
     Dosage: UNK
     Route: 048
  4. AMARYL [Suspect]
     Dosage: 1 MG, QD
     Route: 048
  5. FERON [Suspect]
     Indication: CHRONIC HEPATITIS C
     Dosage: DAILY DOSAGE UNKNOWN
     Route: 051
     Dates: start: 20130510, end: 20130719
  6. FERON [Suspect]
     Dosage: UNK
     Route: 051
     Dates: start: 20121209
  7. PLAVIX [Concomitant]
     Dosage: 75 MG, QD
     Route: 048
  8. ATORVASTATIN [Concomitant]
     Dosage: 10 MG, QD
     Route: 048
  9. BAYASPIRIN [Concomitant]
     Dosage: 100 MG, QD
     Route: 048
  10. NIKORANMART [Concomitant]
     Dosage: 15 MG, TID
     Route: 048
  11. METGLUCO [Concomitant]
     Dosage: 750 MG, TID
     Route: 048
  12. JANUVIA TABLETS 50MG [Concomitant]
     Dosage: 50 MG, QD
     Route: 048

REACTIONS (7)
  - Persecutory delusion [Recovered/Resolved]
  - Hallucination, auditory [Recovered/Resolved]
  - Aggression [Recovered/Resolved]
  - Anger [Recovered/Resolved]
  - Psychomotor hyperactivity [Recovered/Resolved]
  - Irritability [Recovered/Resolved]
  - Psychiatric symptom [Not Recovered/Not Resolved]
